FAERS Safety Report 14292398 (Version 2)
Quarter: 2017Q4

REPORT INFORMATION
  Report Type: Report from Study
  Country: FR (occurrence: FR)
  Receive Date: 20171215
  Receipt Date: 20171223
  Transmission Date: 20180321
  Serious: Yes (Death, Hospitalization, Other)
  Sender: FDA-Public Use
  Company Number: PHHY2017FR186736

PATIENT
  Age: 80 Year
  Sex: Female
  Weight: 46 kg

DRUGS (1)
  1. ZARZIO [Suspect]
     Active Substance: FILGRASTIM
     Indication: NEUTROPENIA
     Dosage: 30 OT, QD
     Route: 058
     Dates: start: 20171127, end: 20171201

REACTIONS (5)
  - Vomiting [Fatal]
  - Dysphagia [Fatal]
  - Neutropenia [Fatal]
  - Decreased appetite [Fatal]
  - Fungal infection [Fatal]

NARRATIVE: CASE EVENT DATE: 20171129
